FAERS Safety Report 7635964-6 (Version None)
Quarter: 2011Q3

REPORT INFORMATION
  Report Type: 
  Country: None (occurrence: None)
  Receive Date: 20110726
  Receipt Date: 20110714
  Transmission Date: 20111222
  Serious: Yes (Hospitalization)
  Sender: FDA-Public Use
  Company Number: JP-ROCHE-744770

PATIENT
  Age: 9 Year
  Sex: Male

DRUGS (21)
  1. VALGANCICLOVIR [Suspect]
     Indication: CYTOMEGALOVIRUS INFECTION
     Route: 048
     Dates: start: 20100709, end: 20100805
  2. SPRYCEL [Suspect]
     Route: 048
     Dates: start: 20100528
  3. PREDNISOLONE [Suspect]
     Indication: LEUKAEMIA
     Route: 048
  4. BACTRIM [Concomitant]
     Route: 048
     Dates: start: 20100709, end: 20100924
  5. SPRYCEL [Suspect]
     Route: 048
     Dates: start: 20100710
  6. SPRYCEL [Suspect]
     Route: 048
     Dates: start: 20100722, end: 20100924
  7. PREDNISOLONE [Suspect]
     Route: 048
  8. PREDNISOLONE [Suspect]
     Route: 048
  9. NEORAL [Concomitant]
     Route: 048
     Dates: start: 20100614
  10. SPRYCEL [Suspect]
     Route: 048
     Dates: start: 20100709, end: 20100709
  11. NEORAL [Concomitant]
     Route: 048
     Dates: start: 20100722
  12. SPRYCEL [Suspect]
     Route: 048
     Dates: start: 20100715
  13. PREDNISOLONE [Suspect]
     Route: 048
  14. FLUCONAZOLE [Concomitant]
     Route: 048
     Dates: start: 20100709, end: 20100924
  15. NEORAL [Concomitant]
     Route: 048
     Dates: start: 20100712
  16. VALGANCICLOVIR [Suspect]
     Route: 048
     Dates: start: 20100906, end: 20100924
  17. MAGNESIUM OXIDE [Concomitant]
     Route: 048
     Dates: start: 20100709, end: 20100924
  18. NEORAL [Concomitant]
     Route: 048
     Dates: start: 20100802, end: 20100924
  19. SPRYCEL [Suspect]
     Route: 048
     Dates: start: 20100630
  20. PREDNISOLONE [Suspect]
     Route: 048
  21. NEORAL [Concomitant]
     Route: 048
     Dates: start: 20100609

REACTIONS (4)
  - PANCYTOPENIA [None]
  - DIARRHOEA [None]
  - HAEMATOCHEZIA [None]
  - UPPER LIMB FRACTURE [None]
